FAERS Safety Report 5562432-8 (Version None)
Quarter: 2007Q4

REPORT INFORMATION
  Report Type: 
  Country: None (occurrence: None)
  Receive Date: 20071215
  Receipt Date: 20070514
  Transmission Date: 20080405
  Serious: No
  Sender: FDA-Public Use
  Company Number: US-AMGEN-US224744

PATIENT
  Sex: Male
  Weight: 78.1 kg

DRUGS (5)
  1. ARANESP [Suspect]
     Indication: RENAL FAILURE CHRONIC
     Route: 058
     Dates: start: 20060301
  2. EZETIMIBE/SIMVASTATIN [Concomitant]
     Route: 065
  3. GABAPENTIN [Concomitant]
     Route: 065
  4. FUROSEMIDE [Concomitant]
     Route: 065
  5. VITAMIN B-12 [Concomitant]
     Route: 065

REACTIONS (2)
  - HAEMOGLOBIN DECREASED [None]
  - INCORRECT ROUTE OF DRUG ADMINISTRATION [None]
